FAERS Safety Report 16278449 (Version 2)
Quarter: 2020Q1

REPORT INFORMATION
  Report Type: Spontaneous
  Country: US (occurrence: US)
  Receive Date: 20190506
  Receipt Date: 20200304
  Transmission Date: 20200409
  Serious: Yes (Death, Hospitalization, Other)
  Sender: FDA-Public Use
  Company Number: US-ASTRAZENECA-2019SE66805

PATIENT
  Age: 22769 Day
  Sex: Male

DRUGS (29)
  1. JANUVIA [Suspect]
     Active Substance: SITAGLIPTIN PHOSPHATE
     Route: 065
     Dates: start: 2006, end: 201602
  2. MELATONIN [Concomitant]
     Active Substance: MELATONIN
     Indication: SLEEP DISORDER
  3. ASPIRIN. [Concomitant]
     Active Substance: ASPIRIN
  4. PRILOSEC [Concomitant]
     Active Substance: OMEPRAZOLE MAGNESIUM
  5. BYETTA [Suspect]
     Active Substance: EXENATIDE
     Dosage: VARIOUS DOSES 3-4 TIMES DAILY
     Route: 065
     Dates: start: 200510, end: 2006
  6. JANUVIA [Suspect]
     Active Substance: SITAGLIPTIN PHOSPHATE
     Route: 065
     Dates: start: 2005, end: 2016
  7. LANTUS [Concomitant]
     Active Substance: INSULIN GLARGINE
  8. JANUVIA [Suspect]
     Active Substance: SITAGLIPTIN PHOSPHATE
     Route: 048
     Dates: start: 20160201
  9. LASIX [Concomitant]
     Active Substance: FUROSEMIDE
  10. LOMOTIL [Concomitant]
     Active Substance: ATROPINE SULFATE\DIPHENOXYLATE HYDROCHLORIDE
  11. LORAZEPAM. [Concomitant]
     Active Substance: LORAZEPAM
  12. METOCLOPRAMIDE. [Concomitant]
     Active Substance: METOCLOPRAMIDE
  13. ONDANSETRON [Concomitant]
     Active Substance: ONDANSETRON
  14. CLOTRIMAZOLE/BETAMETHASONE [Concomitant]
     Active Substance: BETAMETHASONE\CLOTRIMAZOLE
  15. CAPOTEN [Concomitant]
     Active Substance: CAPTOPRIL
  16. VITAMIN B COMPLEX [Concomitant]
     Active Substance: CYANOCOBALAMIN\DEXPANTHENOL\NIACINAMIDE\PYRIDOXINE HYDROCHLORIDE\RIBOFLAVIN 5^-PHOSPHATE SODIUM\THIAMINE HYDROCHLORIDE\VITAMIN B COMPLEX
     Indication: MULTI-VITAMIN DEFICIENCY
  17. GLYBURIDE. [Concomitant]
     Active Substance: GLYBURIDE
  18. NOVOLOG [Concomitant]
     Active Substance: INSULIN ASPART
  19. HYDROCODONE-ACETAMINOPHEN [Concomitant]
     Active Substance: ACETAMINOPHEN\HYDROCODONE
  20. RESTORIL [Concomitant]
     Active Substance: TEMAZEPAM
  21. ZOLPIDEM [Concomitant]
     Active Substance: ZOLPIDEM TARTRATE
  22. CHOLECALCIFEROL [Concomitant]
     Active Substance: CHOLECALCIFEROL
  23. GLUCOPHAGE [Concomitant]
     Active Substance: METFORMIN HYDROCHLORIDE
  24. LIPITOR [Concomitant]
     Active Substance: ATORVASTATIN CALCIUM
  25. ZETIA [Concomitant]
     Active Substance: EZETIMIBE
  26. ZOFRAN [Concomitant]
     Active Substance: ONDANSETRON HYDROCHLORIDE
  27. SPIRONOLACTONE. [Concomitant]
     Active Substance: SPIRONOLACTONE
  28. BYETTA [Suspect]
     Active Substance: EXENATIDE
     Route: 065
     Dates: start: 2005, end: 2009
  29. CYANOCOBALAMIN. [Concomitant]
     Active Substance: CYANOCOBALAMIN

REACTIONS (6)
  - Respiratory failure [Fatal]
  - Pancreatic carcinoma metastatic [Unknown]
  - Adenocarcinoma pancreas [Unknown]
  - Pancreatic carcinoma [Unknown]
  - Cardiac arrest [Fatal]
  - Pneumonia [Fatal]

NARRATIVE: CASE EVENT DATE: 20160107
